FAERS Safety Report 9672134 (Version 3)
Quarter: 2013Q4

REPORT INFORMATION
  Report Type: Spontaneous
  Country: JP (occurrence: JP)
  Receive Date: 20131106
  Receipt Date: 20131121
  Transmission Date: 20140711
  Serious: Yes (Other)
  Sender: FDA-Public Use
  Company Number: JP-ASTRAZENECA-2013SE79617

PATIENT
  Age: 64 Year
  Sex: Male

DRUGS (1)
  1. SYMBICORT TURBUHALER [Suspect]
     Indication: ASTHMA
     Dosage: 30 DOSES, 1 PUFF TWO TIMES A DAY
     Route: 055
     Dates: start: 20131001

REACTIONS (3)
  - Neoplasm progression [Unknown]
  - Dysphonia [Unknown]
  - Oropharyngeal discomfort [Unknown]
